FAERS Safety Report 8513099-8 (Version None)
Quarter: 2012Q3

REPORT INFORMATION
  Report Type: 
  Country: None (occurrence: None)
  Receive Date: 20120716
  Receipt Date: 20120710
  Transmission Date: 20120928
  Serious: Yes (Death, Life-Threatening, Other)
  Sender: FDA-Public Use
  Company Number: JP-CELGENEUS-087-50794-11083238

PATIENT
  Sex: Male
  Weight: 50 kg

DRUGS (45)
  1. ALLEGRA [Concomitant]
     Route: 065
     Dates: start: 20110524
  2. FAMOTIDINE [Concomitant]
     Route: 065
     Dates: start: 20110713, end: 20111012
  3. ADVAIR DISKUS 100/50 [Concomitant]
     Route: 065
     Dates: start: 20110523
  4. ANTIBIOTICS [Concomitant]
     Indication: NEUTROPENIA
     Route: 065
  5. LEVOFLOXACIN [Concomitant]
     Route: 065
     Dates: start: 20110715, end: 20110717
  6. GARENOXACIN MESYLATE [Concomitant]
     Route: 065
     Dates: start: 20110810, end: 20110815
  7. NEUTROGIN [Concomitant]
     Route: 065
     Dates: start: 20110909, end: 20110915
  8. VIDAZA [Suspect]
     Dosage: 75 MILLIGRAM/SQ. METER
     Route: 058
     Dates: start: 20110614, end: 20110620
  9. SULFAMETHOXAZOLE AND TRIMETHOPRIM [Concomitant]
     Route: 065
     Dates: start: 20110523
  10. SULFAMETHOXAZOLE AND TRIMETHOPRIM [Concomitant]
     Route: 065
     Dates: start: 20110713, end: 20110907
  11. ADVAIR DISKUS 100/50 [Concomitant]
     Route: 065
     Dates: start: 20110713
  12. MEROPENEM [Concomitant]
     Route: 065
     Dates: start: 20110920, end: 20110922
  13. VIDAZA [Suspect]
     Dosage: 75 MILLIGRAM
     Route: 058
     Dates: start: 20110713, end: 20110719
  14. FLUCONAZOLE [Concomitant]
     Route: 065
     Dates: start: 20110713, end: 20110922
  15. ALLEGRA [Concomitant]
     Route: 065
     Dates: start: 20110718, end: 20110803
  16. ANTIFUNGAL [Concomitant]
     Indication: NEUTROPENIA
     Route: 065
  17. PENTAMIDINE ISETHIONATE [Concomitant]
     Route: 065
     Dates: start: 20110907, end: 20110907
  18. ALLEGRA [Concomitant]
     Route: 065
     Dates: start: 20110824, end: 20110830
  19. SPIRIVA [Concomitant]
     Route: 065
     Dates: start: 20110713
  20. BIO-THREE [Concomitant]
     Route: 065
     Dates: end: 20111012
  21. OMEGACIN [Concomitant]
     Route: 065
     Dates: start: 20111003, end: 20111007
  22. VIDAZA [Suspect]
     Dosage: 75 MILLIGRAM
     Route: 058
     Dates: start: 20110815, end: 20110821
  23. ZOFRAN [Concomitant]
     Route: 065
     Dates: start: 20110713, end: 20110719
  24. SPIRIVA [Concomitant]
     Route: 065
     Dates: start: 20110523
  25. NEUPOGEN [Concomitant]
     Indication: NEUTROPENIA
     Route: 065
  26. FUNGUARD [Concomitant]
     Route: 065
     Dates: start: 20110915, end: 20110922
  27. FUNGUARD [Concomitant]
     Route: 065
     Dates: start: 20111007, end: 20111104
  28. DORIPENEM MONOHYDRATE [Concomitant]
     Route: 065
     Dates: start: 20110923, end: 20111003
  29. VIDAZA [Suspect]
     Dosage: 75 MILLIGRAM/SQ. METER
     Route: 058
     Dates: start: 20110523, end: 20110524
  30. ZOFRAN [Concomitant]
     Route: 065
     Dates: start: 20110523, end: 20110524
  31. FAMOTIDINE [Concomitant]
     Route: 065
     Dates: start: 20110523
  32. VFEND [Concomitant]
     Route: 065
     Dates: start: 20110923, end: 20111004
  33. TEICOPLANIN [Concomitant]
     Route: 065
     Dates: start: 20110923, end: 20111003
  34. ZOSYN [Concomitant]
     Route: 065
     Dates: start: 20111007, end: 20111014
  35. ZOFRAN [Concomitant]
     Route: 065
     Dates: start: 20110815, end: 20110821
  36. NEUTROGIN [Concomitant]
     Route: 065
     Dates: start: 20110920, end: 20111103
  37. PLATELETS [Concomitant]
     Route: 065
  38. ZOFRAN [Concomitant]
     Route: 065
     Dates: start: 20110613, end: 20110619
  39. FLUCONAZOLE [Concomitant]
     Route: 065
     Dates: start: 20110523
  40. MAXIPIME [Concomitant]
     Route: 065
     Dates: start: 20110525, end: 20110530
  41. MAXIPIME [Concomitant]
     Route: 065
     Dates: start: 20110907, end: 20110909
  42. CLARITHROMYCIN [Concomitant]
     Route: 065
     Dates: end: 20110727
  43. AMIKAMYCIN [Concomitant]
     Route: 065
     Dates: start: 20110915, end: 20110922
  44. OMEGACIN [Concomitant]
     Route: 065
     Dates: start: 20111014, end: 20111021
  45. IMIPENEM AND CILASTATIN SODIUM [Concomitant]
     Route: 065
     Dates: start: 20111022, end: 20111104

REACTIONS (16)
  - PLATELET COUNT DECREASED [None]
  - ANAEMIA [None]
  - NEUTROPENIA [None]
  - WHITE BLOOD CELL COUNT DECREASED [None]
  - GASTROINTESTINAL HAEMORRHAGE [None]
  - HAEMOCONCENTRATION [None]
  - HYPERCHLORAEMIA [None]
  - MONOCYTE COUNT DECREASED [None]
  - FEBRILE NEUTROPENIA [None]
  - HYPOKALAEMIA [None]
  - NEUTROPHIL COUNT DECREASED [None]
  - RENAL DISORDER [None]
  - LYMPHOCYTE COUNT DECREASED [None]
  - THROMBOCYTOPENIA [None]
  - HYPERPHOSPHATAEMIA [None]
  - HYPERNATRAEMIA [None]
